FAERS Safety Report 5255979-5 (Version None)
Quarter: 2007Q1

REPORT INFORMATION
  Report Type: 
  Country: None (occurrence: None)
  Receive Date: 20070302
  Receipt Date: 20070302
  Transmission Date: 20070707
  Serious: Yes (Hospitalization)
  Sender: FDA-Public Use
  Company Number: None

PATIENT
  Age: 82 Year
  Sex: Male
  Weight: 86 kg

DRUGS (9)
  1. AMBIEN [Suspect]
     Indication: INSOMNIA
     Dosage: 5MG  AT BEDTIME  PO
     Route: 048
  2. PROZAC [Suspect]
     Indication: DEPRESSION
     Dosage: 10MG  DAILY  PO
     Route: 048
  3. ASPIRIN [Concomitant]
  4. DARVOCET-N 100 [Concomitant]
  5. ZANTAC [Concomitant]
  6. TOPROL-XL [Concomitant]
  7. PLAVIX [Concomitant]
  8. LASIX [Concomitant]
  9. K-DUR 10 [Concomitant]

REACTIONS (3)
  - FALL [None]
  - SLEEP WALKING [None]
  - WRIST FRACTURE [None]
